FAERS Safety Report 5372771-1 (Version None)
Quarter: 2007Q2

REPORT INFORMATION
  Report Type: 
  Country: None (occurrence: None)
  Receive Date: 20070621
  Receipt Date: 20061003
  Transmission Date: 20071010
  Serious: Yes (Other)
  Sender: FDA-Public Use
  Company Number: US-JNJFOC-20060805543

PATIENT
  Age: 34 Year
  Sex: Male
  Weight: 70.3075 kg

DRUGS (1)
  1. HALDOL DECANOATE (HALOPERIDOL DECANOATE) INJECTION [Suspect]
     Indication: BIPOLAR I DISORDER
     Dosage: INTRAMUSCULAR
     Route: 030

REACTIONS (1)
  - TARDIVE DYSKINESIA [None]
